FAERS Safety Report 11809912 (Version 1)
Quarter: 2015Q4

REPORT INFORMATION
  Report Type: Spontaneous
  Country: US (occurrence: None)
  Receive Date: 20151207
  Receipt Date: 20151207
  Transmission Date: 20160305
  Serious: Yes (Other)
  Sender: FDA-Public Use
  Company Number: None

PATIENT
  Age: 70 Year
  Sex: Male
  Weight: 85 kg

DRUGS (10)
  1. ACYCLOVIR. [Concomitant]
     Active Substance: ACYCLOVIR
  2. OXYBUTININ [Concomitant]
     Active Substance: OXYBUTYNIN\OXYBUTYNIN CHLORIDE
  3. HEPARIN [Suspect]
     Active Substance: HEPARIN SODIUM
     Indication: PULMONARY EMBOLISM
     Dosage: 18 UNITS/KG/HOUR
     Route: 042
     Dates: start: 20151201, end: 20151203
  4. SORAFENIB [Concomitant]
     Active Substance: SORAFENIB
  5. ONDANSETRON [Concomitant]
     Active Substance: ONDANSETRON
  6. SIMVASTATIN. [Concomitant]
     Active Substance: SIMVASTATIN
  7. FEBUXOSTAT. [Concomitant]
     Active Substance: FEBUXOSTAT
  8. FLUCONAZOLE. [Concomitant]
     Active Substance: FLUCONAZOLE
  9. HYDROXYUREA. [Concomitant]
     Active Substance: HYDROXYUREA
  10. DECITABINE. [Concomitant]
     Active Substance: DECITABINE

REACTIONS (7)
  - No reaction on previous exposure to drug [None]
  - Mental status changes [None]
  - Confusional state [None]
  - Pyrexia [None]
  - Tachycardia [None]
  - Fatigue [None]
  - Asthenia [None]

NARRATIVE: CASE EVENT DATE: 20151202
